FAERS Safety Report 5428145-8 (Version None)
Quarter: 2007Q3

REPORT INFORMATION
  Report Type: 
  Country: None (occurrence: None)
  Receive Date: 20070828
  Receipt Date: 20070822
  Transmission Date: 20080115
  Serious: Yes (Disabling)
  Sender: FDA-Public Use
  Company Number: US-BOEHRINGER INGELHEIM PHARMACEUTICALS, INC.-2007-BP-19813PF

PATIENT
  Sex: Male

DRUGS (18)
  1. SPIRIVA [Suspect]
     Route: 055
  2. LIPITOR [Concomitant]
     Route: 048
  3. SINGULAIR [Concomitant]
     Route: 048
  4. NEXIUM [Concomitant]
     Route: 048
  5. TRICOR [Concomitant]
     Route: 048
  6. TOPROL-XL [Concomitant]
     Route: 048
  7. SPIRONOLACTONE [Concomitant]
     Route: 048
  8. ALBUTEROL [Concomitant]
     Route: 048
  9. UROXATRAL [Concomitant]
     Route: 048
  10. GLYBURIDE [Concomitant]
     Route: 048
  11. HUMULIN 70/30 [Concomitant]
     Route: 058
  12. NEOMYCIN/POLYMYXIN HC 1% OTIC SOLUTION [Concomitant]
  13. ICAR C PLUS [Concomitant]
     Route: 048
  14. ASPIRIN [Concomitant]
     Route: 048
  15. M.V.I. [Concomitant]
     Route: 048
  16. CORTISPORIN [Concomitant]
  17. NITROGLYCERIN [Concomitant]
  18. ACTOS [Concomitant]

REACTIONS (1)
  - DISABILITY [None]
